FAERS Safety Report 9879393 (Version 1)
Quarter: 2014Q1

REPORT INFORMATION
  Report Type: Spontaneous
  Country: US (occurrence: US)
  Receive Date: 20140206
  Receipt Date: 20140206
  Transmission Date: 20141002
  Serious: No
  Sender: FDA-Public Use
  Company Number: US-B.I. PHARMACEUTICALS,INC./RIDGEFIELD-2014-BI-04485BP

PATIENT
  Age: 73 Year
  Sex: Female
  Weight: 73 kg

DRUGS (2)
  1. MIRAPEX [Suspect]
     Indication: RESTLESS LEGS SYNDROME
     Dosage: 0.25 MG
     Route: 048
     Dates: start: 20131201, end: 20131218
  2. MIRAPEX [Suspect]
     Dosage: 0.5 MG
     Route: 048
     Dates: start: 20131219

REACTIONS (3)
  - Restless legs syndrome [Not Recovered/Not Resolved]
  - Syncope [Recovered/Resolved]
  - Syncope [Recovered/Resolved]
